FAERS Safety Report 12072817 (Version 4)
Quarter: 2016Q3

REPORT INFORMATION
  Report Type: Spontaneous
  Country: US (occurrence: US)
  Receive Date: 20160212
  Receipt Date: 20160801
  Transmission Date: 20161109
  Serious: No
  Sender: FDA-Public Use
  Company Number: US-PFIZER INC-2016076445

PATIENT
  Age: 52 Year
  Sex: Female

DRUGS (8)
  1. FASLODEX [Concomitant]
     Active Substance: FULVESTRANT
     Dosage: 250 MG/5 ML, MONTHLY (10 ML/EVERY MONTH AS 2 EQUALLY DIVIDED INJECTIONS, ONE IN EACH BUTTOCK)
     Route: 030
     Dates: start: 20151217
  2. FEMARA [Concomitant]
     Active Substance: LETROZOLE
     Indication: RETROPERITONEAL NEOPLASM METASTATIC
     Dosage: 2.5 MG, DAILY
     Route: 048
     Dates: start: 20151217
  3. LETROZOLE. [Concomitant]
     Active Substance: LETROZOLE
     Dosage: UNK
  4. ADDERALL [Concomitant]
     Active Substance: AMPHETAMINE ASPARTATE\AMPHETAMINE SULFATE\DEXTROAMPHETAMINE SACCHARATE\DEXTROAMPHETAMINE SULFATE
     Dosage: 20 MG, 1X/DAY (EVERY DAY BEFORE BREAKFAST)
     Route: 048
  5. GOSERELIN [Concomitant]
     Active Substance: GOSERELIN
  6. IBRANCE [Suspect]
     Active Substance: PALBOCICLIB
     Indication: BREAST CANCER METASTATIC
     Dosage: 125 MG, CYCLIC (DAILY FOR 21 DAYS ON, 7 DAYS OFF)
     Route: 048
     Dates: start: 20160114
  7. ZOLOFT [Concomitant]
     Active Substance: SERTRALINE HYDROCHLORIDE
     Dosage: 25 MG, DAILY
     Route: 048
     Dates: start: 20120229
  8. XGEVA [Concomitant]
     Active Substance: DENOSUMAB
     Indication: BONE CANCER
     Dosage: 120 MG/1.7 ML (; INJECT 1.7 MILLILITER BY SUBCUTANEOUS ROUTE EVERY 4 WEEKS)
     Route: 058
     Dates: start: 20151217

REACTIONS (10)
  - Fatigue [Unknown]
  - Nausea [Unknown]
  - Neutrophil count decreased [Recovered/Resolved]
  - Abdominal distension [Unknown]
  - Bone pain [Unknown]
  - White blood cell count decreased [Unknown]
  - Visual impairment [Unknown]
  - Stomatitis [Unknown]
  - Gingival swelling [Unknown]
  - Hot flush [Unknown]

NARRATIVE: CASE EVENT DATE: 20160128
